FAERS Safety Report 9847626 (Version 2)
Quarter: 2014Q1

REPORT INFORMATION
  Report Type: Spontaneous
  Country: US (occurrence: US)
  Receive Date: 20140128
  Receipt Date: 20140226
  Transmission Date: 20141002
  Serious: No
  Sender: FDA-Public Use
  Company Number: US-009507513-1401USA008160

PATIENT
  Age: 56 Year
  Sex: Female
  Weight: 69.84 kg

DRUGS (2)
  1. PEGINTRON [Suspect]
     Indication: HEPATITIS C
     Dosage: 120 MICROGRAM, QW
     Route: 058
     Dates: start: 20140108
  2. PEGINTRON [Suspect]
     Dosage: ACCIDENTALLY TWO INJECTIONS WITHIN 12 HOURS
     Dates: start: 201401

REACTIONS (2)
  - Accidental overdose [Unknown]
  - No adverse event [Unknown]
